FAERS Safety Report 24002702 (Version 2)
Quarter: 2024Q3

REPORT INFORMATION
  Report Type: Report from Study
  Country: US (occurrence: US)
  Receive Date: 20240624
  Receipt Date: 20240703
  Transmission Date: 20241016
  Serious: No
  Sender: ABBVIE
  Company Number: US-ABBVIE-5809523

PATIENT
  Sex: Female
  Weight: 77 kg

DRUGS (19)
  1. SKYRIZI [Suspect]
     Active Substance: RISANKIZUMAB-RZAA
     Indication: Psoriasis
     Dosage: FORM STRENGTH: 150 MILLIGRAM
     Route: 058
     Dates: start: 20231220
  2. MUCINEX DM [Concomitant]
     Active Substance: DEXTROMETHORPHAN HYDROBROMIDE\GUAIFENESIN
     Indication: Product used for unknown indication
  3. PREDNISONE [Concomitant]
     Active Substance: PREDNISONE
     Indication: Product used for unknown indication
  4. VITAMIN D3 [Concomitant]
     Active Substance: CHOLECALCIFEROL
     Indication: Product used for unknown indication
     Dosage: 5000 IU (INTERNATIONAL UNIT)
  5. MONTELUKAST [Concomitant]
     Active Substance: MONTELUKAST SODIUM
     Indication: Respiratory disorder
  6. HYDROCHLOROTHIAZIDE [Concomitant]
     Active Substance: HYDROCHLOROTHIAZIDE
     Indication: Product used for unknown indication
     Dosage: 12.5 MILLIGRAM
  7. METOPROLOL [Concomitant]
     Active Substance: METOPROLOL
     Indication: Blood cholesterol
     Dosage: 25 MILLIGRAM
  8. ALBUTEROL [Concomitant]
     Active Substance: ALBUTEROL
     Indication: Respiratory disorder
  9. TYLENOL [Concomitant]
     Active Substance: ACETAMINOPHEN
     Indication: Product used for unknown indication
  10. ATORVASTATIN [Concomitant]
     Active Substance: ATORVASTATIN
     Indication: Blood pressure measurement
     Dosage: 10 MILLIGRAM
  11. GABAPENTIN [Concomitant]
     Active Substance: GABAPENTIN
     Indication: Back disorder
     Dosage: 300 MILLIGRAM
  12. SERTRALINE [Concomitant]
     Active Substance: SERTRALINE HYDROCHLORIDE
     Indication: Depression
     Dosage: 100 MILLIGRAM
  13. CLARITIN [Concomitant]
     Active Substance: LORATADINE
     Indication: Hypersensitivity
  14. ZYRTEC [Concomitant]
     Active Substance: CETIRIZINE HYDROCHLORIDE
     Indication: Hypersensitivity
  15. ANASTROZOLE [Concomitant]
     Active Substance: ANASTROZOLE
     Indication: Neoplasm malignant
     Dosage: 1 MILLIGRAM
  16. AZITHROMYCIN [Concomitant]
     Active Substance: AZITHROMYCIN
     Indication: Product used for unknown indication
  17. AMLODIPINE [Concomitant]
     Active Substance: AMLODIPINE BESYLATE
     Indication: Blood cholesterol
     Dosage: 5 MILLIGRAM
  18. APPLE CIDER VINEGAR [Concomitant]
     Active Substance: APPLE CIDER VINEGAR
     Indication: Product used for unknown indication
  19. LEVOTHYROXINE [Concomitant]
     Active Substance: LEVOTHYROXINE\LEVOTHYROXINE SODIUM
     Indication: Hypothyroidism
     Dosage: 125 MICROGRAM

REACTIONS (3)
  - Paranasal sinus discomfort [Not Recovered/Not Resolved]
  - Pneumonia [Recovering/Resolving]
  - Ear congestion [Not Recovered/Not Resolved]

NARRATIVE: CASE EVENT DATE: 20230101
